FAERS Safety Report 4587912-3 (Version None)
Quarter: 2005Q1

REPORT INFORMATION
  Report Type: 
  Country: None (occurrence: None)
  Receive Date: 20050219
  Receipt Date: 20050114
  Transmission Date: 20050727
  Serious: Yes (Hospitalization, Other)
  Sender: FDA-Public Use
  Company Number: PHRM2005FR00529

PATIENT
  Age: 60 Year
  Sex: Male
  Weight: 83 kg

DRUGS (7)
  1. KARDEGIC [Concomitant]
     Dosage: 75 MG, QD
     Route: 048
     Dates: start: 20040330
  2. THALIDOMIDE [Concomitant]
     Dosage: UNK, UNK
     Route: 048
     Dates: start: 20040722
  3. ZOCOR [Concomitant]
     Dosage: 20 MG, QD
     Route: 048
     Dates: start: 19940330
  4. FLUDEX [Suspect]
     Route: 048
     Dates: start: 20040427, end: 20041120
  5. AMLOR [Concomitant]
     Dosage: 10 MG, QD
     Route: 048
     Dates: start: 20040330
  6. NEORECORMON ^ROCHE^ [Concomitant]
     Dosage: 10000 IU, QW
     Route: 058
  7. ZOMETA [Suspect]
     Indication: MULTIPLE MYELOMA
     Dosage: 4 MG, QMO
     Route: 042
     Dates: start: 20040722, end: 20041117

REACTIONS (4)
  - BLOOD CREATININE INCREASED [None]
  - NEPHRITIS INTERSTITIAL [None]
  - PROTEINURIA [None]
  - RENAL FAILURE ACUTE [None]
